FAERS Safety Report 23172490 (Version 1)
Quarter: 2023Q4

REPORT INFORMATION
  Report Type: Report from Study
  Country: RO (occurrence: None)
  Receive Date: 20231110
  Receipt Date: 20231110
  Transmission Date: 20240109
  Serious: Yes (Hospitalization)
  Sender: FDA-Public Use
  Company Number: RO-ROCHE-3453446

PATIENT
  Age: 60 Year
  Sex: Female
  Weight: 60.05 kg

DRUGS (5)
  1. PRALSETINIB [Suspect]
     Active Substance: PRALSETINIB
     Indication: Neoplasm
     Dosage: ON 26/OCT/2023, RECEIVED MOST RECENT DOSE OF PRALSETINIB PRIOR TO ANEMIA.
     Route: 048
     Dates: start: 20200928
  2. ATACAND [Concomitant]
     Active Substance: CANDESARTAN CILEXETIL
     Dates: start: 202308
  3. AURONAL [Concomitant]
     Dates: start: 202308
  4. ACETAMINOPHEN\CODEINE PHOSPHATE [Concomitant]
     Active Substance: ACETAMINOPHEN\CODEINE PHOSPHATE
     Dosage: 500/30MG
     Dates: start: 202308
  5. METAMIZOLE SODIUM [Concomitant]
     Active Substance: METAMIZOLE SODIUM
     Dates: start: 20230926

REACTIONS (1)
  - Anaemia [Recovered/Resolved]

NARRATIVE: CASE EVENT DATE: 20231027
